FAERS Safety Report 5615100-8 (Version None)
Quarter: 2008Q1

REPORT INFORMATION
  Report Type: 
  Country: None (occurrence: None)
  Receive Date: 20080206
  Receipt Date: 20070417
  Transmission Date: 20080703
  Serious: Yes (Hospitalization)
  Sender: FDA-Public Use
  Company Number: A0647628A

PATIENT
  Age: 33 Year
  Sex: Male

DRUGS (2)
  1. ARIXTRA [Suspect]
     Dosage: 2.5MCG PER DAY
     Route: 058
     Dates: start: 20070414
  2. MEPERGAN [Concomitant]

REACTIONS (2)
  - HEADACHE [None]
  - INCISION SITE HAEMORRHAGE [None]
